FAERS Safety Report 6596745-8 (Version None)
Quarter: 2010Q1

REPORT INFORMATION
  Report Type: 
  Country: None (occurrence: None)
  Receive Date: 20100223
  Receipt Date: 20100217
  Transmission Date: 20100710
  Serious: Yes (Hospitalization, Disabling)
  Sender: FDA-Public Use
  Company Number: CA-MERCK-1001CAN00162

PATIENT
  Age: 58 Year
  Sex: Male
  Weight: 173 kg

DRUGS (23)
  1. INVANZ [Suspect]
     Indication: OSTEITIS
     Route: 042
     Dates: start: 20091001, end: 20091001
  2. WARFARIN SODIUM [Concomitant]
     Dosage: DOSE BASED ON INR
     Route: 065
     Dates: start: 20070101, end: 20091001
  3. WARFARIN SODIUM [Concomitant]
     Dosage: DOSE BASED ON INR
     Route: 065
     Dates: start: 20091001
  4. FERROUS SULFATE [Concomitant]
     Indication: ANAEMIA
     Route: 065
     Dates: start: 20070101, end: 20100101
  5. ASPIRIN [Concomitant]
     Indication: ATRIAL FIBRILLATION
     Route: 065
     Dates: start: 20070101, end: 20100101
  6. FUROSEMIDE [Concomitant]
     Indication: OEDEMA
     Route: 065
     Dates: start: 20080101, end: 20100101
  7. FUROSEMIDE [Concomitant]
     Indication: BLOOD PRESSURE
     Route: 065
     Dates: start: 20080101, end: 20100101
  8. METOLAZONE [Concomitant]
     Indication: OEDEMA
     Route: 065
     Dates: start: 20080101, end: 20100101
  9. METOLAZONE [Concomitant]
     Indication: HYPERTENSION
     Route: 065
     Dates: start: 20080101, end: 20100101
  10. HYDROCHLOROTHIAZIDE [Concomitant]
     Indication: OEDEMA
     Route: 065
     Dates: start: 20080101, end: 20100101
  11. HYDROCHLOROTHIAZIDE [Concomitant]
     Indication: HYPERTENSION
     Route: 065
     Dates: start: 20080101, end: 20100101
  12. AMLODIPINE BESYLATE [Concomitant]
     Indication: HYPERTENSION
     Route: 065
     Dates: start: 20070101
  13. BISOPROLOL FUMARATE [Concomitant]
     Indication: HYPERTENSION
     Route: 065
     Dates: start: 20070101
  14. IRBESARTAN [Concomitant]
     Indication: HYPERTENSION
     Route: 065
     Dates: start: 20070101, end: 20100101
  15. CLONIDINE [Concomitant]
     Indication: HYPERTENSION
     Route: 065
     Dates: start: 20070101, end: 20100101
  16. CLONIDINE [Concomitant]
     Route: 065
     Dates: start: 20100101
  17. ATORVASTATIN CALCIUM [Concomitant]
     Indication: BLOOD CHOLESTEROL
     Route: 065
     Dates: start: 20070101
  18. NITROGLYCERIN [Concomitant]
     Route: 065
  19. PANTOPRAZOLE SODIUM [Concomitant]
     Route: 065
     Dates: start: 20020101
  20. ACETAMINOPHEN [Concomitant]
     Indication: PAIN
     Route: 065
     Dates: start: 20090101
  21. FLEXERIL [Concomitant]
     Indication: PAIN
     Route: 065
     Dates: start: 20090101, end: 20100101
  22. LORAZEPAM [Concomitant]
     Indication: INSOMNIA
     Route: 065
     Dates: start: 20040101, end: 20100101
  23. DOCUSATE SODIUM [Concomitant]
     Indication: CONSTIPATION
     Route: 065
     Dates: start: 20040101, end: 20100101

REACTIONS (3)
  - HENOCH-SCHONLEIN PURPURA [None]
  - RENAL FAILURE ACUTE [None]
  - TUBULOINTERSTITIAL NEPHRITIS [None]
